FAERS Safety Report 14032111 (Version 1)
Quarter: 2017Q4

REPORT INFORMATION
  Report Type: Spontaneous
  Country: FR (occurrence: FR)
  Receive Date: 20171002
  Receipt Date: 20171002
  Transmission Date: 20180321
  Serious: Yes (Hospitalization)
  Sender: FDA-Public Use
  Company Number: FR-PFIZER INC-2017414155

PATIENT
  Age: 33 Year
  Sex: Male

DRUGS (10)
  1. ZITHROMAX [Suspect]
     Active Substance: AZITHROMYCIN DIHYDRATE
     Indication: CONJUNCTIVITIS
  2. INIPOMP [Concomitant]
     Active Substance: PANTOPRAZOLE SODIUM
     Dosage: 40 MG, 1X/DAY(IN THE EVENING)
  3. RIFAMPICIN [Concomitant]
     Active Substance: RIFAMPIN
     Indication: INFLUENZA
  4. ZITHROMAX [Suspect]
     Active Substance: AZITHROMYCIN DIHYDRATE
     Indication: INFLUENZA LIKE ILLNESS
     Dosage: 500 MG, DAILY
     Route: 048
     Dates: start: 20170714, end: 20170716
  5. PAROXETINE. [Concomitant]
     Active Substance: PAROXETINE
     Dosage: 20 MG, 1X/DAY (IN THE EVENING)
  6. TOBRADEX [Concomitant]
     Active Substance: DEXAMETHASONE\TOBRAMYCIN
     Indication: CONJUNCTIVITIS
     Dosage: UNK
     Dates: start: 20170717, end: 20170718
  7. AMOXICILLIN. [Suspect]
     Active Substance: AMOXICILLIN
     Indication: TONSILLITIS
     Dosage: 2 G, DAILY
     Route: 048
     Dates: start: 20170701, end: 20170707
  8. AUGMENTIN [Suspect]
     Active Substance: AMOXICILLIN\CLAVULANATE POTASSIUM
     Indication: CONJUNCTIVITIS
     Dosage: 2 G, DAILY
     Route: 048
     Dates: start: 20170717, end: 20170718
  9. LYSANXIA [Concomitant]
     Active Substance: PRAZEPAM
     Dosage: 5.5 MG, 1X/DAY (11 DROPS IN THE EVENING)
  10. RIFAMPICIN [Concomitant]
     Active Substance: RIFAMPIN
     Indication: CONJUNCTIVITIS
     Dosage: UNK
     Dates: start: 20170714, end: 20170718

REACTIONS (4)
  - Transaminases increased [Recovering/Resolving]
  - Cholestasis [Recovering/Resolving]
  - Hepatocellular injury [Recovering/Resolving]
  - Product use in unapproved indication [Recovered/Resolved]

NARRATIVE: CASE EVENT DATE: 20170714
